FAERS Safety Report 6411260-X (Version None)
Quarter: 2009Q4

REPORT INFORMATION
  Report Type: 
  Country: None (occurrence: None)
  Receive Date: 20091022
  Receipt Date: 20091014
  Transmission Date: 20100525
  Serious: Yes (Other)
  Sender: FDA-Public Use
  Company Number: JP-PFIZER INC-2009279761

PATIENT
  Age: 75 Year

DRUGS (3)
  1. LIPITOR [Suspect]
     Dosage: UNK
     Route: 048
     Dates: start: 20080801, end: 20081001
  2. PLAVIX [Suspect]
  3. BUFFERIN [Suspect]

REACTIONS (1)
  - AGRANULOCYTOSIS [None]
